FAERS Safety Report 8637924 (Version 3)
Quarter: 2013Q3

REPORT INFORMATION
  Report Type: Report from Study
  Country: US (occurrence: US)
  Receive Date: 20120627
  Receipt Date: 20130711
  Transmission Date: 20140515
  Serious: Yes (Hospitalization, Other)
  Sender: FDA-Public Use
  Company Number: US-ELI_LILLY_AND_COMPANY-US201111002963

PATIENT
  Sex: Female

DRUGS (3)
  1. TERIPARATIDE [Suspect]
     Indication: OSTEOPOROSIS
     Dosage: 20 UG, QD
     Dates: start: 20111024
  2. TERIPARATIDE [Suspect]
     Dosage: 20 UG, QD
  3. PROTONIX [Concomitant]
     Indication: DYSPEPSIA
     Dosage: UNK

REACTIONS (9)
  - Coronary artery disease [Unknown]
  - Intestinal mass [Unknown]
  - Injection site discolouration [Unknown]
  - Injection site bruising [Recovered/Resolved]
  - Skin lesion [Unknown]
  - Haematemesis [Unknown]
  - Malaise [Unknown]
  - Haemoglobin decreased [Unknown]
  - Haematocrit decreased [Unknown]
